FAERS Safety Report 17271512 (Version 3)
Quarter: 2020Q3

REPORT INFORMATION
  Report Type: Spontaneous
  Country: US (occurrence: US)
  Receive Date: 20200115
  Receipt Date: 20200904
  Transmission Date: 20201102
  Serious: Yes (Other)
  Sender: FDA-Public Use
  Company Number: US-GILEAD-2020-0445963

PATIENT
  Age: 48 Year
  Sex: Male

DRUGS (6)
  1. ATRIPLA [Suspect]
     Active Substance: EFAVIRENZ\EMTRICITABINE\TENOFOVIR DISOPROXIL FUMARATE
     Indication: HIV INFECTION
     Dosage: UNK
     Route: 048
     Dates: start: 20080214, end: 2014
  2. VIREAD [Suspect]
     Active Substance: TENOFOVIR DISOPROXIL FUMARATE
     Indication: HIV INFECTION
     Dosage: UNK
     Route: 048
     Dates: start: 20050407, end: 20080214
  3. TRUVADA [Suspect]
     Active Substance: EMTRICITABINE\TENOFOVIR DISOPROXIL FUMARATE
     Indication: ACQUIRED IMMUNODEFICIENCY SYNDROME
  4. TRUVADA [Suspect]
     Active Substance: EMTRICITABINE\TENOFOVIR DISOPROXIL FUMARATE
     Indication: HIV INFECTION
     Dosage: UNK
     Route: 048
     Dates: start: 2014, end: 2018
  5. ATRIPLA [Suspect]
     Active Substance: EFAVIRENZ\EMTRICITABINE\TENOFOVIR DISOPROXIL FUMARATE
     Indication: ACQUIRED IMMUNODEFICIENCY SYNDROME
  6. BIKTARVY [Concomitant]
     Active Substance: BICTEGRAVIR SODIUM\EMTRICITABINE\TENOFOVIR ALAFENAMIDE FUMARATE

REACTIONS (20)
  - Intervertebral disc protrusion [Not Recovered/Not Resolved]
  - Rib fracture [Not Recovered/Not Resolved]
  - Anhedonia [Not Recovered/Not Resolved]
  - Osteonecrosis [Unknown]
  - Emotional distress [Not Recovered/Not Resolved]
  - Economic problem [Not Recovered/Not Resolved]
  - Fibula fracture [Not Recovered/Not Resolved]
  - Bone density decreased [Unknown]
  - Renal cyst [Not Recovered/Not Resolved]
  - Femur fracture [Not Recovered/Not Resolved]
  - Bone loss [Unknown]
  - Tibia fracture [Not Recovered/Not Resolved]
  - Spinal osteoarthritis [Unknown]
  - Pain [Not Recovered/Not Resolved]
  - Blood creatinine increased [Not Recovered/Not Resolved]
  - Clavicle fracture [Not Recovered/Not Resolved]
  - Anxiety [Not Recovered/Not Resolved]
  - Haematuria [Not Recovered/Not Resolved]
  - Proteinuria [Not Recovered/Not Resolved]
  - Intervertebral disc degeneration [Not Recovered/Not Resolved]

NARRATIVE: CASE EVENT DATE: 20060427
